FAERS Safety Report 7309003-0 (Version None)
Quarter: 2011Q1

REPORT INFORMATION
  Report Type: 
  Country: None (occurrence: None)
  Receive Date: 20110223
  Receipt Date: 20110207
  Transmission Date: 20110831
  Serious: Yes (Hospitalization, Other)
  Sender: FDA-Public Use
  Company Number: US-BAYER-201037553NA

PATIENT
  Sex: Female

DRUGS (3)
  1. YAZ [Suspect]
     Indication: ACNE
  2. OCELLA [Suspect]
     Indication: ACNE
  3. YASMIN [Suspect]
     Indication: ACNE

REACTIONS (14)
  - PORTAL HYPERTENSION [None]
  - BENIGN GASTRIC NEOPLASM [None]
  - HEPATIC INFARCTION [None]
  - CONSTIPATION [None]
  - PANCREATITIS ACUTE [None]
  - CANDIDIASIS [None]
  - URINARY RETENTION [None]
  - PORTAL VEIN THROMBOSIS [None]
  - VENOUS THROMBOSIS [None]
  - GASTRITIS [None]
  - HEPATITIS [None]
  - GASTROOESOPHAGEAL REFLUX DISEASE [None]
  - ABDOMINAL PAIN [None]
  - MESENTERIC VASCULAR INSUFFICIENCY [None]
